FAERS Safety Report 9540822 (Version 1)
Quarter: 2013Q3

REPORT INFORMATION
  Report Type: Spontaneous
  Country: US (occurrence: US)
  Receive Date: 20130920
  Receipt Date: 20130920
  Transmission Date: 20140515
  Serious: Yes (Hospitalization)
  Sender: FDA-Public Use
  Company Number: US-BAYER-2013-111859

PATIENT
  Age: 4 Year
  Sex: Male

DRUGS (2)
  1. CAMPHO-PHENIQUE ANTISEPTIC LIQUID [Suspect]
     Indication: COUGH
     Dosage: 1 DF, UNK
     Route: 061
  2. ROBITUSSIN [DEXTROMETHORPHAN HYDROBROMIDE,ETHANOL,GUAIFENESIN] [Concomitant]
     Indication: COUGH

REACTIONS (3)
  - Grand mal convulsion [Recovered/Resolved]
  - Vomiting [Recovered/Resolved]
  - Incorrect route of drug administration [Recovered/Resolved]
